FAERS Safety Report 9638880 (Version 1)
Quarter: 2013Q4

REPORT INFORMATION
  Report Type: Spontaneous
  Country: US (occurrence: US)
  Receive Date: 20131022
  Receipt Date: 20131022
  Transmission Date: 20140711
  Serious: No
  Sender: FDA-Public Use
  Company Number: US-BRISTOL-MYERS SQUIBB COMPANY-19124288

PATIENT
  Age: 68 Year
  Sex: Female
  Weight: 72.56 kg

DRUGS (2)
  1. ELIQUIS [Suspect]
     Indication: CARDIAC FLUTTER
  2. TOPROL [Suspect]
     Indication: BLOOD PRESSURE

REACTIONS (2)
  - Abdominal pain upper [Unknown]
  - Eructation [Unknown]
